FAERS Safety Report 8963487 (Version 1)
Quarter: 2012Q4

REPORT INFORMATION
  Report Type: 
  Country: JP (occurrence: JP)
  Receive Date: 20121214
  Receipt Date: 20121214
  Transmission Date: 20130627
  Serious: Yes (Hospitalization)
  Sender: FDA-Public Use
  Company Number: JP-JNJFOC-20120313617

PATIENT
  Age: 74 Year
  Sex: Female

DRUGS (4)
  1. SIMPONI [Suspect]
     Indication: RHEUMATOID ARTHRITIS
     Route: 058
     Dates: start: 20120215
  2. SIMPONI [Suspect]
     Indication: RHEUMATOID ARTHRITIS
     Route: 058
     Dates: start: 20120411
  3. METHOTREXATE [Concomitant]
  4. ARASENA-A [Concomitant]
     Route: 061

REACTIONS (1)
  - Herpes zoster [Recovered/Resolved]
